FAERS Safety Report 18016388 (Version 2)
Quarter: 2020Q3

REPORT INFORMATION
  Report Type: Spontaneous
  Country: AT (occurrence: AT)
  Receive Date: 20200713
  Receipt Date: 20200811
  Transmission Date: 20201103
  Serious: Yes (Other)
  Sender: FDA-Public Use
  Company Number: AT-UCBSA-2020026402

PATIENT
  Age: 5 Decade
  Sex: Male

DRUGS (6)
  1. PRAMIPEXOLE. [Suspect]
     Active Substance: PRAMIPEXOLE
     Dosage: 3.15 MILLIGRAM DAILY; FORM OF THE RETARD PREPARATION
     Dates: start: 2010
  2. PRAMIPEXOLE. [Suspect]
     Active Substance: PRAMIPEXOLE
     Indication: PRODUCT USED FOR UNKNOWN INDICATION
     Dosage: 0.35 MILLIGRAM, 3X/DAY (TID)
     Dates: start: 2008
  3. PRAMIPEXOLE. [Suspect]
     Active Substance: PRAMIPEXOLE
     Dosage: 0.7 MILLIGRAM, 3X/DAY (TID)
     Dates: start: 2009
  4. APOMORPHINE [Suspect]
     Active Substance: APOMORPHINE
     Indication: PRODUCT USED FOR UNKNOWN INDICATION
     Dosage: 4 MG SINGLE DOSES
     Dates: start: 2015
  5. ROTIGOTINE [Suspect]
     Active Substance: ROTIGOTINE
     Dosage: UPTITRATED TO 10 MILLIGRAM
     Route: 062
     Dates: start: 2017
  6. ROTIGOTINE [Suspect]
     Active Substance: ROTIGOTINE
     Indication: RESTLESS LEGS SYNDROME
     Dosage: UNKNOWN DOSE
     Route: 062
     Dates: start: 2017

REACTIONS (1)
  - Gambling [Recovered/Resolved]

NARRATIVE: CASE EVENT DATE: 2013
